FAERS Safety Report 7600788-2 (Version None)
Quarter: 2011Q3

REPORT INFORMATION
  Report Type: 
  Country: None (occurrence: None)
  Receive Date: 20110711
  Receipt Date: 20110705
  Transmission Date: 20111222
  Serious: Yes (Hospitalization)
  Sender: FDA-Public Use
  Company Number: JP-B.I. PHARMACEUTICALS,INC./RIDGEFIELD-2011-BP-12778NB

PATIENT
  Sex: Female
  Weight: 64.5 kg

DRUGS (9)
  1. MAIBASTAN [Concomitant]
     Indication: DIABETES MELLITUS
     Route: 048
     Dates: start: 20100714
  2. ALLORIN [Concomitant]
     Indication: GOUT
     Dosage: 200 MG
     Route: 048
     Dates: start: 20101016
  3. ANISTO [Concomitant]
     Indication: HYPERTENSION
     Route: 048
     Dates: start: 20100807
  4. AMLODIPINE [Concomitant]
     Indication: HYPERTENSION
     Dosage: 5 MG
     Route: 048
     Dates: start: 20100225
  5. VOGLIBOSE OD [Concomitant]
     Indication: DIABETES MELLITUS
     Dosage: 0.6 MG
     Route: 048
     Dates: start: 20100225
  6. FLUTORIA [Concomitant]
     Indication: HYPERTENSION
     Dosage: 2 MG
     Route: 048
     Dates: start: 20100302
  7. MAIBASTAN [Concomitant]
     Indication: DYSLIPIDAEMIA
  8. DIOVAN [Concomitant]
     Indication: HYPERTENSION
     Dosage: 80 MG
     Route: 048
     Dates: start: 20100225
  9. PRADAXA [Suspect]
     Indication: ATRIAL FIBRILLATION
     Dosage: 220 MG
     Route: 048
     Dates: start: 20110405

REACTIONS (1)
  - CEREBRAL INFARCTION [None]
